FAERS Safety Report 8126277 (Version 2)
Quarter: 2012Q4

REPORT INFORMATION
  Report Type: 
  Country: US (occurrence: US)
  Receive Date: 20110908
  Receipt Date: 20121016
  Transmission Date: 20130627
  Serious: Yes (Hospitalization)
  Sender: FDA-Public Use
  Company Number: US-ELI_LILLY_AND_COMPANY-US201105003042

PATIENT
  Age: 64 None
  Sex: Female

DRUGS (11)
  1. FORTEO [Suspect]
     Indication: OSTEOPOROSIS
     Dosage: 20 ug, qd
     Route: 065
     Dates: start: 20100823, end: 201209
  2. FORTEO [Suspect]
     Dosage: 20 ug, qd
  3. VENTOLIN HFA [Concomitant]
  4. SINGULAIR [Concomitant]
  5. ZANTAC [Concomitant]
  6. CARDIAZEM [Concomitant]
  7. IPRATROPIUM [Concomitant]
  8. XOPENEX HFA [Concomitant]
  9. ADVAIR [Concomitant]
  10. FLONASE [Concomitant]
  11. PREDNISONE [Concomitant]
     Dosage: 10 mg, UNK

REACTIONS (14)
  - Respiratory tract infection [Unknown]
  - Chronic obstructive pulmonary disease [Unknown]
  - Chronic obstructive pulmonary disease [Unknown]
  - Chronic obstructive pulmonary disease [Unknown]
  - Chronic obstructive pulmonary disease [Unknown]
  - Chronic obstructive pulmonary disease [Unknown]
  - Chronic obstructive pulmonary disease [Unknown]
  - Intestinal obstruction [Unknown]
  - Blood sodium decreased [Unknown]
  - Back pain [Unknown]
  - Contusion [Unknown]
  - Injection site pain [Unknown]
  - Injection site bruising [Unknown]
  - Chronic obstructive pulmonary disease [Not Recovered/Not Resolved]
